FAERS Safety Report 5695491-2 (Version None)
Quarter: 2008Q2

REPORT INFORMATION
  Report Type: 
  Country: None (occurrence: None)
  Receive Date: 20080407
  Receipt Date: 20071015
  Transmission Date: 20081010
  Serious: Yes (Hospitalization, Other)
  Sender: FDA-Public Use
  Company Number: RO-NOVOPROD-272988

PATIENT
  Sex: Female
  Weight: 110 kg

DRUGS (2)
  1. ACTRAPID [Suspect]
     Indication: DRUG USE FOR UNKNOWN INDICATION
     Dosage: 50 U, QD
     Route: 058
     Dates: start: 20070818
  2. INSULATARD [Suspect]
     Indication: DRUG USE FOR UNKNOWN INDICATION
     Dosage: 24 U, QD
     Route: 058
     Dates: start: 20070818

REACTIONS (2)
  - CAESAREAN SECTION [None]
  - EMERGENCY CARE [None]
